FAERS Safety Report 25849431 (Version 1)
Quarter: 2025Q3

REPORT INFORMATION
  Report Type: Spontaneous
  Country: US (occurrence: US)
  Receive Date: 20250925
  Receipt Date: 20250925
  Transmission Date: 20251021
  Serious: No
  Sender: ROCHE
  Company Number: US-ROCHE-10000394899

PATIENT
  Sex: Female

DRUGS (4)
  1. ACTEMRA [Suspect]
     Active Substance: TOCILIZUMAB
     Indication: Morphoea
     Route: 058
     Dates: start: 202402
  2. ACTEMRA [Suspect]
     Active Substance: TOCILIZUMAB
     Indication: Dermatitis atopic
  3. AMBRISENTAN [Concomitant]
     Active Substance: AMBRISENTAN
  4. SILDENAPIL [Concomitant]

REACTIONS (2)
  - Off label use [Unknown]
  - Nasal congestion [Unknown]
